FAERS Safety Report 17374080 (Version 1)
Quarter: 2020Q1

REPORT INFORMATION
  Report Type: Spontaneous
  Country: US (occurrence: US)
  Receive Date: 20200204
  Receipt Date: 20200204
  Transmission Date: 20200409
  Serious: Yes (Other)
  Sender: FDA-Public Use
  Company Number: None

PATIENT
  Age: 64 Year
  Sex: Male
  Weight: 90.45 kg

DRUGS (10)
  1. LEVOXYL [Concomitant]
     Active Substance: LEVOTHYROXINE SODIUM
  2. CARDIOL [Concomitant]
  3. LINSINOPRIL [Concomitant]
     Active Substance: LISINOPRIL
  4. JARDIANCE [Suspect]
     Active Substance: EMPAGLIFLOZIN
     Indication: DIABETES MELLITUS
     Dosage: ?          QUANTITY:1 TABLET(S);?
     Route: 048
     Dates: start: 20191230, end: 20200109
  5. BIOFLEX [Concomitant]
     Active Substance: GLUCOSAMINE SULFATE
  6. METFORMIN [Concomitant]
     Active Substance: METFORMIN HYDROCHLORIDE
  7. GLYPICIDE [Concomitant]
  8. VITAMIN D3 [Concomitant]
     Active Substance: CHOLECALCIFEROL
  9. CA [Concomitant]
  10. ZINC. [Concomitant]
     Active Substance: ZINC

REACTIONS (2)
  - Blood glucose increased [None]
  - Paradoxical drug reaction [None]

NARRATIVE: CASE EVENT DATE: 20200101
